FAERS Safety Report 5393337-3 (Version None)
Quarter: 2007Q3

REPORT INFORMATION
  Report Type: 
  Country: None (occurrence: None)
  Receive Date: 20070723
  Receipt Date: 20070712
  Transmission Date: 20080115
  Serious: Yes (Death, Hospitalization)
  Sender: FDA-Public Use
  Company Number: HQWYE034213JUL07

PATIENT
  Age: 43 Year
  Sex: Male
  Weight: 73.8 kg

DRUGS (3)
  1. MYLOTARG [Suspect]
     Indication: ACUTE MYELOID LEUKAEMIA
     Dosage: 11.5 MG TOTAL DOSE
     Dates: start: 20070517, end: 20070517
  2. DAUNORUBICIN HCL [Suspect]
     Indication: ACUTE MYELOID LEUKAEMIA
     Dosage: 261 MG TOTAL DOSE
     Dates: start: 20070514, end: 20070516
  3. CYTARABINE [Suspect]
     Indication: ACUTE MYELOID LEUKAEMIA
     Dosage: 1344 MG
     Dates: start: 20070514, end: 20070520

REACTIONS (6)
  - DISEASE PROGRESSION [None]
  - ENTEROCOLITIS INFECTIOUS [None]
  - PANCYTOPENIA [None]
  - PELVIC INFECTION [None]
  - PERICARDIAL EFFUSION [None]
  - PLEURAL EFFUSION [None]
